FAERS Safety Report 6954961-7 (Version None)
Quarter: 2010Q3

REPORT INFORMATION
  Report Type: 
  Country: None (occurrence: None)
  Receive Date: 20100830
  Receipt Date: 20100817
  Transmission Date: 20110219
  Serious: Yes (Other)
  Sender: FDA-Public Use
  Company Number: US-TYCO HEALTHCARE/MALLINCKRODT-T201001820

PATIENT
  Sex: Female
  Weight: 68.027 kg

DRUGS (1)
  1. OPTIRAY 350 [Suspect]
     Indication: ANGIOGRAM
     Dosage: LESS THAN 100 ML, SINGLE
     Route: 042
     Dates: start: 20100604, end: 20100604

REACTIONS (5)
  - CHEST PAIN [None]
  - CONVULSION [None]
  - DYSPNOEA [None]
  - HEADACHE [None]
  - UNRESPONSIVE TO STIMULI [None]
